FAERS Safety Report 5067034-8 (Version None)
Quarter: 2006Q3

REPORT INFORMATION
  Report Type: 
  Country: None (occurrence: None)
  Receive Date: 20060727
  Receipt Date: 20060714
  Transmission Date: 20061208
  Serious: Yes (Other)
  Sender: FDA-Public Use
  Company Number: 2003010520

PATIENT
  Age: 45 Year
  Sex: Male

DRUGS (7)
  1. ZIPRASIDONE HCL [Suspect]
     Indication: DRUG USE FOR UNKNOWN INDICATION
     Dosage: 40 MG (20 MG, 2 IN 1 D),
  2. MIRAPEX [Suspect]
     Indication: BIPOLAR DISORDER
  3. LITHIUM (LITHIUM) [Suspect]
     Indication: BIPOLAR DISORDER
     Dosage: 1500 MG (DAILY),
  4. LAMOTRIGINE [Suspect]
     Indication: BIPOLAR DISORDER
     Dosage: 300 MG (DAILY),
  5. OXCARBAZEPINE [Suspect]
     Indication: BIPOLAR DISORDER
     Dosage: 200 MG (DAILY),
  6. CLONAZEPAM [Suspect]
     Indication: BIPOLAR DISORDER
     Dosage: 2 MG (DAILY),
  7. TOLCAPONE (TOLCAPONE) [Concomitant]

REACTIONS (1)
  - MANIA [None]
